FAERS Safety Report 23445576 (Version 4)
Quarter: 2024Q2

REPORT INFORMATION
  Report Type: Spontaneous
  Country: US (occurrence: US)
  Receive Date: 20240126
  Receipt Date: 20240415
  Transmission Date: 20240716
  Serious: No
  Sender: FDA-Public Use
  Company Number: US-BRISTOL-MYERS SQUIBB COMPANY-2024-013514

PATIENT
  Age: 66 Year
  Sex: Female
  Weight: 71.21 kg

DRUGS (1)
  1. ELIQUIS [Suspect]
     Active Substance: APIXABAN
     Indication: Thrombosis
     Route: 048
     Dates: start: 20221128

REACTIONS (3)
  - Hypoacusis [Unknown]
  - General physical health deterioration [Unknown]
  - Mental disorder [Unknown]
